FAERS Safety Report 17587316 (Version 1)
Quarter: 2020Q1

REPORT INFORMATION
  Report Type: Spontaneous
  Country: US (occurrence: US)
  Receive Date: 20200326
  Receipt Date: 20200326
  Transmission Date: 20200409
  Serious: No
  Sender: FDA-Public Use
  Company Number: US-APRECIA PHARMACEUTICALS-APRE20200026

PATIENT
  Age: 63 Year
  Sex: Male

DRUGS (1)
  1. SPRITAM [Suspect]
     Active Substance: LEVETIRACETAM
     Indication: PRODUCT USED FOR UNKNOWN INDICATION
     Dosage: 1000 MG
     Route: 048
     Dates: start: 20191220

REACTIONS (2)
  - Confusional state [Recovered/Resolved]
  - Balance disorder [Recovered/Resolved]
